FAERS Safety Report 4399189-2 (Version None)
Quarter: 2004Q3

REPORT INFORMATION
  Report Type: 
  Country: None (occurrence: None)
  Receive Date: 20040716
  Receipt Date: 20040426
  Transmission Date: 20050211
  Serious: Yes (Other)
  Sender: FDA-Public Use
  Company Number: PHNU2004DE01654

PATIENT
  Age: 11 Year
  Sex: Male
  Weight: 53 kg

DRUGS (1)
  1. SANDIMMUNE [Suspect]
     Indication: LIVER TRANSPLANT
     Dosage: 100 MG, BID
     Route: 048
     Dates: start: 19940928

REACTIONS (3)
  - BLOOD ALBUMIN DECREASED [None]
  - CROHN'S DISEASE [None]
  - PROTEIN-LOSING GASTROENTEROPATHY [None]
